FAERS Safety Report 15974024 (Version 1)
Quarter: 2019Q1

REPORT INFORMATION
  Report Type: Spontaneous
  Country: DE (occurrence: DE)
  Receive Date: 20190217
  Receipt Date: 20190217
  Transmission Date: 20190418
  Serious: Yes (Hospitalization)
  Sender: FDA-Public Use
  Company Number: DE-TEVA-2019-DE-1012092

PATIENT
  Age: 45 Year
  Sex: Male
  Weight: 112 kg

DRUGS (9)
  1. FLIXABI [Suspect]
     Active Substance: INFLIXIMAB
     Route: 065
     Dates: start: 20181008, end: 20181106
  2. NOVALGIN [Concomitant]
     Indication: PAIN
     Dosage: 500MG PRN
     Route: 065
  3. FLIXABI [Suspect]
     Active Substance: INFLIXIMAB
     Indication: CROHN^S DISEASE
     Route: 065
     Dates: start: 20180831, end: 20181106
  4. FLIXABI [Suspect]
     Active Substance: INFLIXIMAB
     Route: 065
     Dates: start: 20181106, end: 20181106
  5. MESALAZIN [Suspect]
     Active Substance: MESALAMINE
     Indication: CROHN^S DISEASE
     Dosage: 2-0-2
     Route: 065
  6. MIRTAZAPINE. [Concomitant]
     Active Substance: MIRTAZAPINE
     Indication: DEPRESSION
     Dosage: 30 MILLIGRAM DAILY;
     Route: 065
  7. PREDNISOLONE. [Suspect]
     Active Substance: PREDNISOLONE
     Indication: CROHN^S DISEASE
     Dosage: 10 MILLIGRAM DAILY;
     Route: 065
     Dates: end: 20181113
  8. PANTOPRAZOLE [Concomitant]
     Active Substance: PANTOPRAZOLE
     Indication: GASTRIC DISORDER
     Dosage: 40 MILLIGRAM DAILY;
     Route: 065
  9. METHOTREXATE. [Suspect]
     Active Substance: METHOTREXATE
     Indication: CROHN^S DISEASE
     Dosage: 15 MILLIGRAM DAILY;
     Route: 065
     Dates: end: 20181113

REACTIONS (1)
  - Ileus [Recovered/Resolved]

NARRATIVE: CASE EVENT DATE: 20181110
